FAERS Safety Report 9208362 (Version 4)
Quarter: 2015Q1

REPORT INFORMATION
  Report Type: Report from Study
  Country: CH (occurrence: CH)
  Receive Date: 20130404
  Receipt Date: 20150312
  Transmission Date: 20150721
  Serious: Yes (Hospitalization)
  Sender: FDA-Public Use
  Company Number: CH-BIOGENIDEC-2013BI028600

PATIENT
  Age: 62 Year
  Sex: Female

DRUGS (3)
  1. AVONEX [Suspect]
     Active Substance: INTERFERON BETA-1A
     Indication: MULTIPLE SCLEROSIS
     Route: 030
     Dates: start: 20001003, end: 20130318
  2. RELPAX [Concomitant]
     Active Substance: ELETRIPTAN HYDROBROMIDE
  3. AVONEX [Suspect]
     Active Substance: INTERFERON BETA-1A
     Indication: MULTIPLE SCLEROSIS
     Route: 030
     Dates: start: 20130420

REACTIONS (7)
  - Appendicitis [Recovered/Resolved]
  - Intestinal perforation [Recovered/Resolved]
  - Sepsis [Recovered/Resolved]
  - Migraine [Recovered/Resolved]
  - Colitis [Recovered/Resolved]
  - Off label use [Not Recovered/Not Resolved]
  - Procedural pain [Unknown]

NARRATIVE: CASE EVENT DATE: 20001003
